FAERS Safety Report 13857801 (Version 1)
Quarter: 2017Q3

REPORT INFORMATION
  Report Type: Spontaneous
  Country: GR (occurrence: GR)
  Receive Date: 20170811
  Receipt Date: 20170811
  Transmission Date: 20171127
  Serious: Yes (Hospitalization, Other)
  Sender: FDA-Public Use
  Company Number: PHHY2017GR116277

PATIENT

DRUGS (5)
  1. CARBOPLATIN. [Suspect]
     Active Substance: CARBOPLATIN
     Indication: METASTASES TO BONE
  2. PACLITAXEL. [Suspect]
     Active Substance: PACLITAXEL
     Indication: METASTASES TO BONE
  3. ZOLEDRONIC ACID [Suspect]
     Active Substance: ZOLEDRONIC ACID
     Indication: METASTASES TO BONE
     Dosage: UNK
     Route: 065
     Dates: start: 201603
  4. CARBOPLATIN. [Suspect]
     Active Substance: CARBOPLATIN
     Indication: METASTASES TO LIVER
     Dosage: UNK
     Route: 065
  5. PACLITAXEL. [Suspect]
     Active Substance: PACLITAXEL
     Indication: METASTASES TO LIVER
     Dosage: UNK
     Route: 065

REACTIONS (9)
  - Hypoaesthesia [Recovering/Resolving]
  - Cognitive disorder [Recovering/Resolving]
  - Hypocalcaemia [Recovering/Resolving]
  - Muscle spasms [Recovering/Resolving]
  - Malignant neoplasm progression [Unknown]
  - Paraesthesia [Recovering/Resolving]
  - Metastases to liver [Unknown]
  - Metastases to bone [Unknown]
  - Metastases to spleen [Unknown]
